FAERS Safety Report 8112699-7 (Version None)
Quarter: 2012Q1

REPORT INFORMATION
  Report Type: 
  Country: None (occurrence: None)
  Receive Date: 20120203
  Receipt Date: 20120130
  Transmission Date: 20120608
  Serious: No
  Sender: FDA-Public Use
  Company Number: US-PFIZER INC-2012025368

PATIENT
  Sex: Male
  Weight: 104 kg

DRUGS (5)
  1. EFFEXOR [Suspect]
     Indication: DEPRESSION
  2. LITHIUM [Concomitant]
     Indication: BIPOLAR DISORDER
     Dosage: 300 MG, 2X/DAY
  3. LAMICTAL [Concomitant]
     Indication: BIPOLAR DISORDER
     Dosage: 100 MG, 2X/DAY
  4. EFFEXOR [Suspect]
     Indication: BIPOLAR DISORDER
     Dosage: 150 MG, 2X/DAY
     Dates: start: 20090101, end: 20120116
  5. MULTI-VITAMINS [Concomitant]
     Dosage: UNK, DAILY

REACTIONS (8)
  - HEADACHE [None]
  - ABNORMAL DREAMS [None]
  - INSOMNIA [None]
  - WITHDRAWAL SYNDROME [None]
  - NAUSEA [None]
  - NIGHTMARE [None]
  - VOMITING [None]
  - ABDOMINAL PAIN UPPER [None]
